FAERS Safety Report 9315602 (Version 1)
Quarter: 2013Q2

REPORT INFORMATION
  Report Type: Spontaneous
  Country: US (occurrence: US)
  Receive Date: 20130529
  Receipt Date: 20130529
  Transmission Date: 20140414
  Serious: Yes (Hospitalization)
  Sender: FDA-Public Use
  Company Number: US-BAUSCH-BL-2013-003075

PATIENT
  Age: 20 Year
  Sex: Female

DRUGS (14)
  1. TOBRAMYCIN [Suspect]
     Indication: PSEUDOMONAS INFECTION
  2. TOBRAMYCIN [Suspect]
     Dosage: EVERY 8 HOURS
  3. PIPERACILLIN SODIUM/TAZOBACTAM SODIUM [Suspect]
     Indication: PSEUDOMONAS INFECTION
  4. PIPERACILLIN SODIUM/TAZOBACTAM SODIUM [Suspect]
  5. VANCOMYCIN [Suspect]
     Indication: PSEUDOMONAS INFECTION
  6. CEFTAZIDIME [Suspect]
     Indication: PSEUDOMONAS INFECTION
  7. CIPROFLOXACIN [Concomitant]
     Indication: PSEUDOMONAS INFECTION
  8. CIPROFLOXACIN [Concomitant]
  9. AZTREONAM [Concomitant]
  10. PAROXETINE [Concomitant]
     Dosage: 40 MG DAILY
  11. ALPRAZOLAM [Concomitant]
     Dosage: 1 MG TWICE DAILY
  12. METOCLOPRAMIDE [Concomitant]
     Dosage: 10 MG AS NEEDED
  13. PARACETAMOL/HYDROCODONE BITARTRATE [Concomitant]
  14. PARACETAMOL/HYDROCODONE BITARTRATE [Concomitant]

REACTIONS (2)
  - Hepatotoxicity [Recovered/Resolved]
  - Alanine aminotransferase increased [None]
